FAERS Safety Report 5252044-8 (Version None)
Quarter: 2007Q1

REPORT INFORMATION
  Report Type: 
  Country: None (occurrence: None)
  Receive Date: 20070226
  Receipt Date: 20070215
  Transmission Date: 20070707
  Serious: Yes (Other)
  Sender: FDA-Public Use
  Company Number: 2006SP008000

PATIENT
  Age: 64 Year
  Sex: Female

DRUGS (4)
  1. PEG-INTRON [Suspect]
     Indication: HEPATITIS C
     Dosage: 100 MCG QD SC ; SC
     Route: 058
     Dates: start: 20060407, end: 20061117
  2. PEG-INTRON [Suspect]
     Indication: HEPATITIS C
     Dosage: 100 MCG QD SC ; SC
     Route: 058
     Dates: start: 20070101
  3. REBETOL [Suspect]
     Indication: HEPATITIS C
     Dosage: 600 MG QD PO ; PO
     Route: 048
     Dates: start: 20060407, end: 20061117
  4. REBETOL [Suspect]
     Indication: HEPATITIS C
     Dosage: 600 MG QD PO ; PO
     Route: 048
     Dates: start: 20070101

REACTIONS (4)
  - AGGRESSION [None]
  - AGITATION [None]
  - DELIRIUM [None]
  - IMPULSE-CONTROL DISORDER [None]
